FAERS Safety Report 9169222 (Version 1)
Quarter: 2013Q1

REPORT INFORMATION
  Report Type: Spontaneous
  Country: GR (occurrence: GR)
  Receive Date: 20130318
  Receipt Date: 20130318
  Transmission Date: 20140127
  Serious: Yes (Hospitalization)
  Sender: FDA-Public Use
  Company Number: GR-BRISTOL-MYERS SQUIBB COMPANY-18595835

PATIENT
  Age: 65 Year
  Sex: Male
  Weight: 103 kg

DRUGS (7)
  1. LYSODREN [Suspect]
     Indication: ADRENOCORTICAL CARCINOMA
     Dosage: 3.5 GR/D:15JAN2013; INTERR ON 15-FEB-2013
     Route: 048
  2. BISOPROLOL [Suspect]
  3. HYDROCORTISONE [Concomitant]
  4. FLUDROCORTISONE [Concomitant]
  5. ERGOCALCIFEROL [Concomitant]
  6. METFORMIN [Concomitant]
  7. ROSUVASTATIN [Concomitant]

REACTIONS (5)
  - Anaemia [Recovered/Resolved]
  - Pyrexia [Recovered/Resolved]
  - Renal impairment [Recovering/Resolving]
  - C-reactive protein increased [Recovering/Resolving]
  - Chemotherapeutic drug level above therapeutic [None]
